FAERS Safety Report 17840436 (Version 1)
Quarter: 2020Q2

REPORT INFORMATION
  Report Type: Spontaneous
  Country: US (occurrence: US)
  Receive Date: 20200529
  Receipt Date: 20200529
  Transmission Date: 20200714
  Serious: No
  Sender: FDA-Public Use
  Company Number: US-AJANTA PHARMA USA INC.-2084313

PATIENT
  Sex: Female

DRUGS (1)
  1. SILDENAFIL (ANDA 210394) [Suspect]
     Active Substance: SILDENAFIL CITRATE
     Indication: PULMONARY ARTERIAL HYPERTENSION

REACTIONS (1)
  - Vaginal disorder [Not Recovered/Not Resolved]
